FAERS Safety Report 6167157-6 (Version None)
Quarter: 2009Q2

REPORT INFORMATION
  Report Type: 
  Country: None (occurrence: None)
  Receive Date: 20090424
  Receipt Date: 20090422
  Transmission Date: 20091009
  Serious: Yes (Life-Threatening)
  Sender: FDA-Public Use
  Company Number: AT-B.I. PHARMACEUTICALS,INC./RIDGEFIELD-2009-AP-00098AP

PATIENT
  Sex: Male
  Weight: 85 kg

DRUGS (2)
  1. SPIRIVA [Suspect]
     Indication: EMPHYSEMA
     Dosage: INHALATION 1 X IN THE MORNING
     Route: 055
     Dates: start: 20040101
  2. SPIRIVA [Suspect]
     Indication: ASTHMA

REACTIONS (3)
  - ASPHYXIA [None]
  - DYSPNOEA [None]
  - NAUSEA [None]
